FAERS Safety Report 18264515 (Version 2)
Quarter: 2020Q3

REPORT INFORMATION
  Report Type: Spontaneous
  Country: US (occurrence: US)
  Receive Date: 20200914
  Receipt Date: 20200925
  Transmission Date: 20201103
  Serious: Yes (Other)
  Sender: FDA-Public Use
  Company Number: US-PFIZER INC-2020354222

PATIENT
  Age: 61 Year
  Sex: Female

DRUGS (3)
  1. OXYCODONE [Suspect]
     Active Substance: OXYCODONE
     Dosage: UNK
  2. OXYCONTIN [Suspect]
     Active Substance: OXYCODONE HYDROCHLORIDE
     Dosage: UNK
  3. XANAX [Suspect]
     Active Substance: ALPRAZOLAM
     Dosage: UNK

REACTIONS (8)
  - Dyskinesia [Unknown]
  - Memory impairment [Unknown]
  - Diarrhoea [Unknown]
  - Tinnitus [Unknown]
  - Tremor [Unknown]
  - Weight decreased [Unknown]
  - Dependence [Unknown]
  - Confusional state [Unknown]
